FAERS Safety Report 8255282-5 (Version None)
Quarter: 2012Q1

REPORT INFORMATION
  Report Type: 
  Country: None (occurrence: None)
  Receive Date: 20120329
  Receipt Date: 20120322
  Transmission Date: 20120608
  Serious: Yes (Hospitalization)
  Sender: FDA-Public Use
  Company Number: 2012SP013484

PATIENT
  Age: 82 Year
  Sex: Female

DRUGS (2)
  1. BEVACIZUMAB (BEVACIZUMAB) [Suspect]
     Indication: GLIOBLASTOMA
     Dosage: 10 MG/KG;IV
     Route: 042
     Dates: start: 20120220, end: 20120307
  2. TEMOZOLOMIDE [Suspect]
     Indication: GLIOBLASTOMA
     Dosage: 130 MG/M2;PO
     Route: 048
     Dates: start: 20120220, end: 20120224

REACTIONS (4)
  - GENERAL PHYSICAL HEALTH DETERIORATION [None]
  - AGITATION [None]
  - AGGRESSION [None]
  - NEGATIVISM [None]
